FAERS Safety Report 8037884-4 (Version None)
Quarter: 2012Q1

REPORT INFORMATION
  Report Type: 
  Country: None (occurrence: None)
  Receive Date: 20120111
  Receipt Date: 20111229
  Transmission Date: 20120608
  Serious: Yes (Hospitalization)
  Sender: FDA-Public Use
  Company Number: ES-ROCHE-795268

PATIENT
  Sex: Female
  Weight: 63 kg

DRUGS (21)
  1. MYCOPHENOLATE MOFETIL (CELLCEPT) [Suspect]
     Route: 048
  2. PREDNISONE TAB [Concomitant]
  3. FUROSEMIDE [Concomitant]
  4. ENALAPRIL MALEATE [Concomitant]
  5. MYCOPHENOLATE MOFETIL (CELLCEPT) [Suspect]
     Route: 048
  6. COTRIM [Concomitant]
     Dosage: DOSE: 800/160MG
  7. CLOPIDOGREL [Concomitant]
  8. BISOPROLOL FUMARATE [Concomitant]
  9. PREDNISONE TAB [Concomitant]
  10. CALCIUM/VITAMIN D [Concomitant]
  11. PREDNISONE TAB [Concomitant]
  12. BISOPROLOL FUMARATE [Concomitant]
  13. PRAVASTATIN [Concomitant]
  14. MYCOPHENOLATE MOFETIL (CELLCEPT) [Suspect]
     Indication: ANTI-NEUTROPHIL CYTOPLASMIC ANTIBODY POSITIVE VASCULITIS
     Route: 048
  15. ALENDRONATE SODIUM [Concomitant]
  16. PREDNISONE TAB [Concomitant]
  17. NITROGLYCERIN [Concomitant]
     Route: 062
  18. ASPIRIN [Concomitant]
  19. MYCOPHENOLATE MOFETIL (CELLCEPT) [Suspect]
     Route: 048
  20. PREDNISONE TAB [Concomitant]
  21. OMEPRAZOLE [Concomitant]

REACTIONS (5)
  - PYREXIA [None]
  - PULMONARY EMBOLISM [None]
  - MALAISE [None]
  - GASTROINTESTINAL HAEMORRHAGE [None]
  - HAEMODYNAMIC INSTABILITY [None]
